FAERS Safety Report 5261563-X (Version None)
Quarter: 2007Q1

REPORT INFORMATION
  Report Type: 
  Country: None (occurrence: None)
  Receive Date: 20070307
  Receipt Date: 20070220
  Transmission Date: 20070707
  Serious: Yes (Death)
  Sender: FDA-Public Use
  Company Number: 2007JP000714

PATIENT
  Sex: Male

DRUGS (5)
  1. FUNGUARD (MICAFUNGIN) INJECTION [Suspect]
     Dosage: '300 MG, UNKNOWN/D, IV DRIP
     Route: 041
     Dates: start: 20070216, end: 20070216
  2. GASTER D ORODISPERSABLE CR TABLET [Concomitant]
  3. URSO (URSODEOXYCHOLIC ACID) FORMULATIO UNKNOWN [Concomitant]
  4. DIHYDROCODEINE PHOSPHATE (DIHYROCODEINE PHOSPHATE) [Concomitant]
  5. MINOPHAGEN C (AMINOACETIC ACID, GLYCYRRHIZIC ACID) FORMULATION UNKNOWN [Concomitant]

REACTIONS (1)
  - IDIOPATHIC THROMBOCYTOPENIC PURPURA [None]
